FAERS Safety Report 8075881-3 (Version None)
Quarter: 2012Q1

REPORT INFORMATION
  Report Type: 
  Country: None (occurrence: None)
  Receive Date: 20120127
  Receipt Date: 20120123
  Transmission Date: 20120608
  Serious: Yes (Other)
  Sender: FDA-Public Use
  Company Number: US-ABBOTT-11P-163-0872764-00

PATIENT
  Sex: Male
  Weight: 104.42 kg

DRUGS (14)
  1. PANTOPRAZOLE [Concomitant]
     Indication: CROHN'S DISEASE
  2. VITAMIN B-12 [Concomitant]
     Indication: VITAMIN SUPPLEMENTATION
  3. CYCLOBENZAPRINE [Concomitant]
     Indication: BACK INJURY
     Dosage: AT BEDTIME
  4. ASPIRIN [Concomitant]
     Indication: PRODUCT USED FOR UNKNOWN INDICATION
  5. LISINOPRIL AND HYDROCHLOROTHIAZIDE [Concomitant]
     Indication: HYPERTENSION
     Dosage: 20-25 MG DAILY
  6. DOXYCYCLINE [Concomitant]
     Indication: ROSACEA
  7. SIMVASTATIN [Concomitant]
     Indication: BLOOD CHOLESTEROL INCREASED
  8. OPANA ER [Concomitant]
     Indication: BACK PAIN
  9. DIAZEPAM [Concomitant]
     Indication: BACK INJURY
     Dosage: DAILY IN MORNING
  10. STOOL SOFTENER [Concomitant]
     Indication: CONSTIPATION
  11. OXYMORPHONE [Concomitant]
     Indication: PRODUCT USED FOR UNKNOWN INDICATION
  12. HUMIRA [Suspect]
     Indication: CROHN'S DISEASE
     Route: 058
     Dates: start: 20100901
  13. PANTOPRAZOLE [Concomitant]
     Indication: GASTROOESOPHAGEAL REFLUX DISEASE
  14. HYDROCODONE [Concomitant]
     Indication: PAIN

REACTIONS (5)
  - PROSTATOMEGALY [None]
  - URINARY RETENTION [None]
  - HAEMORRHAGE URINARY TRACT [None]
  - BLOOD URINE PRESENT [None]
  - BLOOD URINE [None]
